FAERS Safety Report 15672823 (Version 4)
Quarter: 2019Q2

REPORT INFORMATION
  Report Type: Report from Study
  Country: US (occurrence: US)
  Receive Date: 20181129
  Receipt Date: 20190614
  Transmission Date: 20190711
  Serious: Yes (Hospitalization)
  Sender: FDA-Public Use
  Company Number: US-TESARO-US-2018TSO03932

PATIENT
  Sex: Female

DRUGS (5)
  1. ZEJULA [Suspect]
     Active Substance: NIRAPARIB
     Dosage: 300 MG, DAILY PM WITH SNACK
     Route: 048
     Dates: start: 20180627, end: 20190319
  2. ZEJULA [Suspect]
     Active Substance: NIRAPARIB
     Dosage: 300 MG, DAILY PM WITH SNACK
     Route: 048
     Dates: start: 20190609
  3. ZEJULA [Suspect]
     Active Substance: NIRAPARIB
     Indication: OVARIAN CANCER
     Dosage: 300 MG, QD
     Route: 048
     Dates: start: 201710
  4. ZEJULA [Suspect]
     Active Substance: NIRAPARIB
     Dosage: 300 MG, DAILY PM WITH SNACK
     Route: 048
     Dates: start: 20190329
  5. ZEJULA [Suspect]
     Active Substance: NIRAPARIB
     Dosage: 300 MG, DAILY PM WITH SNACK
     Route: 048
     Dates: start: 201905, end: 20190608

REACTIONS (11)
  - Cerebral thrombosis [Unknown]
  - Fatigue [Not Recovered/Not Resolved]
  - Bacteraemia [Unknown]
  - Pulmonary thrombosis [Unknown]
  - Cerebrovascular accident [Unknown]
  - Insomnia [Unknown]
  - Product dose omission [Unknown]
  - Paraesthesia [Unknown]
  - Dizziness [Unknown]
  - Pain [Unknown]
  - Constipation [Unknown]
